FAERS Safety Report 7707236-2 (Version None)
Quarter: 2011Q3

REPORT INFORMATION
  Report Type: 
  Country: None (occurrence: None)
  Receive Date: 20110824
  Receipt Date: 20110815
  Transmission Date: 20111222
  Serious: Yes (Other)
  Sender: FDA-Public Use
  Company Number: PHHY2011AR72749

PATIENT
  Age: 81 Year
  Sex: Female

DRUGS (1)
  1. SANDOSTATIN LAR [Suspect]
     Indication: VAGOTOMY
     Dosage: 20 MG, MONTHLY
     Route: 030
     Dates: start: 20110809

REACTIONS (5)
  - NAUSEA [None]
  - ABDOMINAL DISCOMFORT [None]
  - TACHYCARDIA [None]
  - HYPOGLYCAEMIA [None]
  - HYPERGLYCAEMIA [None]
